FAERS Safety Report 9813129 (Version 1)
Quarter: 2014Q1

REPORT INFORMATION
  Report Type: Spontaneous
  Country: DK (occurrence: DK)
  Receive Date: 20140113
  Receipt Date: 20140113
  Transmission Date: 20141002
  Serious: Yes (Other)
  Sender: FDA-Public Use
  Company Number: DK-UCBSA-108702

PATIENT
  Sex: Female

DRUGS (3)
  1. METHYLPHENIDATE HYDROCHLORIDE [Suspect]
     Dosage: DOSE: 10 MG
     Dates: start: 20091022
  2. CONCERTA [Interacting]
     Indication: ATTENTION DEFICIT/HYPERACTIVITY DISORDER
     Dosage: DOSE: 36 MG
     Route: 048
     Dates: start: 20100510
  3. ETHANOL [Interacting]

REACTIONS (3)
  - Drug interaction [Unknown]
  - Swelling [Unknown]
  - Arthralgia [Unknown]
